FAERS Safety Report 7376062-9 (Version None)
Quarter: 2011Q1

REPORT INFORMATION
  Report Type: 
  Country: None (occurrence: None)
  Receive Date: 20110325
  Receipt Date: 20110321
  Transmission Date: 20110831
  Serious: No
  Sender: FDA-Public Use
  Company Number: GR-PFIZER INC-2010174254

PATIENT
  Age: 7 Year
  Sex: Male

DRUGS (2)
  1. GENOTROPIN [Suspect]
     Dosage: UNK
     Dates: start: 20101001
  2. GENOTROPIN [Suspect]
     Dosage: UNK
     Dates: start: 20100901

REACTIONS (1)
  - SKIN HYPERPIGMENTATION [None]
